FAERS Safety Report 8174177-9 (Version None)
Quarter: 2012Q1

REPORT INFORMATION
  Report Type: 
  Country: None (occurrence: None)
  Receive Date: 20120227
  Receipt Date: 20120214
  Transmission Date: 20120608
  Serious: No
  Sender: FDA-Public Use
  Company Number: 1193827

PATIENT
  Age: 57 Year
  Sex: Male

DRUGS (1)
  1. SODIUM CHLORIDE 0.9% [Suspect]
     Indication: TRANSFUSION
     Dosage: TO PRIME THE TUBING BEFORE AND AFTER EACH OF TWO INFUSIONS
     Route: 042
     Dates: start: 20120213, end: 20120213

REACTIONS (3)
  - DYSPNOEA [None]
  - HEART RATE INCREASED [None]
  - BLOOD PRESSURE INCREASED [None]
